FAERS Safety Report 9166392 (Version 1)
Quarter: 2013Q1

REPORT INFORMATION
  Report Type: Spontaneous
  Country: CA (occurrence: CA)
  Receive Date: 20130315
  Receipt Date: 20130315
  Transmission Date: 20140127
  Serious: Yes (Hospitalization, Other)
  Sender: FDA-Public Use
  Company Number: CA-BAYER-2013-028489

PATIENT
  Age: 37 Year
  Sex: Female
  Weight: 60 kg

DRUGS (8)
  1. NIFEDIPINE [Suspect]
     Indication: HYPERTENSION
     Dosage: 20 MG, QD
     Route: 048
  2. CALCIUM CARBONATE [Suspect]
     Route: 048
  3. CALCITROL [Suspect]
     Route: 048
  4. FERROUS FUMARATE [Suspect]
     Route: 048
  5. LIDOCAINE W/EPINEPHRIN [Concomitant]
     Indication: EPIDURAL ANAESTHESIA
     Dosage: 5 UNK, UNK
  6. FENTANYL [Concomitant]
     Indication: EPIDURAL ANAESTHESIA
     Dosage: 100 ?G, UNK
     Route: 008
  7. PHENYLEPHRINE [PHENYLEPHRINE] [Concomitant]
     Indication: BLOOD PRESSURE DECREASED
     Route: 008
  8. OXYTOCIN [Concomitant]
     Route: 042

REACTIONS (4)
  - Premature delivery [None]
  - Exposure during pregnancy [None]
  - Off label use [None]
  - Polyhydramnios [None]
